FAERS Safety Report 19943824 (Version 3)
Quarter: 2021Q4

REPORT INFORMATION
  Report Type: Spontaneous
  Country: US (occurrence: US)
  Receive Date: 20211011
  Receipt Date: 20211105
  Transmission Date: 20220303
  Serious: Yes (Death)
  Sender: FDA-Public Use
  Company Number: US-PFIZER INC-202101340214

PATIENT
  Age: 40 Year
  Sex: Male

DRUGS (1)
  1. VIRACEPT [Suspect]
     Active Substance: NELFINAVIR MESYLATE
     Dosage: 1X/DAY [1 QD]
     Dates: end: 20210630

REACTIONS (2)
  - Death [Fatal]
  - Off label use [Unknown]

NARRATIVE: CASE EVENT DATE: 20210630
